FAERS Safety Report 6398134-8 (Version None)
Quarter: 2009Q4

REPORT INFORMATION
  Report Type: 
  Country: None (occurrence: None)
  Receive Date: 20091013
  Receipt Date: 20090914
  Transmission Date: 20100525
  Serious: No
  Sender: FDA-Public Use
  Company Number: US-BAYER-200914522BCC

PATIENT
  Age: 54 Year
  Sex: Female
  Weight: 156 kg

DRUGS (5)
  1. ALEVE [Suspect]
     Indication: MUSCULOSKELETAL PAIN
     Dosage: TOTAL DAILY DOSE: 880 MG  UNIT DOSE: 220 MG
     Route: 048
     Dates: start: 20090831
  2. CYMBALTA [Concomitant]
     Route: 065
  3. PRILOSEC [Concomitant]
     Route: 065
  4. UNKNOWN BLOOD THINNER [Concomitant]
     Route: 065
  5. UNKNOWN SLEEPING PILL [Concomitant]
     Indication: SLEEP DISORDER
     Route: 065

REACTIONS (1)
  - MUSCULOSKELETAL PAIN [None]
